FAERS Safety Report 6448473-7 (Version None)
Quarter: 2009Q4

REPORT INFORMATION
  Report Type: 
  Country: None (occurrence: None)
  Receive Date: 20091120
  Receipt Date: 20091112
  Transmission Date: 20100525
  Serious: Yes (Hospitalization, Other)
  Sender: FDA-Public Use
  Company Number: NO-BAYER-200937317GPV

PATIENT
  Age: 40 Year
  Sex: Female

DRUGS (2)
  1. MIRENA [Suspect]
     Indication: DRUG USE FOR UNKNOWN INDICATION
     Route: 015
     Dates: end: 20090903
  2. MIRENA [Suspect]
     Route: 015
     Dates: start: 20090903, end: 20090903

REACTIONS (4)
  - BRAIN NEOPLASM [None]
  - DEVICE DISLOCATION [None]
  - PROCEDURAL PAIN [None]
  - SMEAR CERVIX ABNORMAL [None]
